FAERS Safety Report 5908675-2 (Version None)
Quarter: 2008Q4

REPORT INFORMATION
  Report Type: 
  Country: None (occurrence: None)
  Receive Date: 20081006
  Receipt Date: 20080925
  Transmission Date: 20090506
  Serious: Yes (Hospitalization)
  Sender: FDA-Public Use
  Company Number: PHHO2008DE11554

PATIENT
  Sex: Male
  Weight: 76 kg

DRUGS (1)
  1. STI571/CGP57148B T35717+CAPS [Suspect]
     Indication: CHRONIC MYELOID LEUKAEMIA
     Dosage: 400 MG, QD
     Route: 048
     Dates: start: 20060911

REACTIONS (4)
  - ABSCESS DRAINAGE [None]
  - PAIN [None]
  - PERIRECTAL ABSCESS [None]
  - SWELLING [None]
